FAERS Safety Report 5570353-X (Version None)
Quarter: 2007Q4

REPORT INFORMATION
  Report Type: 
  Country: None (occurrence: None)
  Receive Date: 20071219
  Receipt Date: 20071219
  Transmission Date: 20080405
  Serious: Yes (Life-Threatening, Hospitalization, Other)
  Sender: FDA-Public Use
  Company Number: None

PATIENT
  Age: 85 Year
  Sex: Female
  Weight: 44.4525 kg

DRUGS (1)
  1. ZOCOR [Suspect]
     Indication: BLOOD CHOLESTEROL
     Dosage: 40 MG DAILY PO
     Route: 048
     Dates: start: 20070401, end: 20071020

REACTIONS (18)
  - ASTHENIA [None]
  - ATRIAL FIBRILLATION [None]
  - CATARACT [None]
  - CONCUSSION [None]
  - DELUSION [None]
  - DISEASE PROGRESSION [None]
  - DYSARTHRIA [None]
  - DYSSTASIA [None]
  - FACIAL BONES FRACTURE [None]
  - FALL [None]
  - GAIT DISTURBANCE [None]
  - HYPOXIA [None]
  - LUNG DISORDER [None]
  - MUSCULAR WEAKNESS [None]
  - PLEURAL EFFUSION [None]
  - POSTURE ABNORMAL [None]
  - RIB FRACTURE [None]
  - STERNAL FRACTURE [None]
